FAERS Safety Report 12674596 (Version 1)
Quarter: 2016Q3

REPORT INFORMATION
  Report Type: Spontaneous
  Country: US (occurrence: US)
  Receive Date: 20160823
  Receipt Date: 20160823
  Transmission Date: 20161109
  Serious: No
  Sender: FDA-Public Use
  Company Number: US-FRI-1000082700

PATIENT
  Sex: Female

DRUGS (1)
  1. SAPHRIS [Suspect]
     Active Substance: ASENAPINE MALEATE
     Indication: DEPRESSION
     Dosage: 5 MG AT NIGHT
     Route: 060
     Dates: start: 2013, end: 20160206

REACTIONS (8)
  - Weight increased [Recovering/Resolving]
  - Malaise [Recovering/Resolving]
  - Increased appetite [Recovered/Resolved]
  - Agitation [Recovering/Resolving]
  - Intentional product misuse [Not Recovered/Not Resolved]
  - Insomnia [Recovering/Resolving]
  - Off label use [Recovered/Resolved]
  - Anxiety [Recovering/Resolving]

NARRATIVE: CASE EVENT DATE: 2013
